FAERS Safety Report 15607227 (Version 1)
Quarter: 2018Q4

REPORT INFORMATION
  Report Type: Spontaneous
  Country: US (occurrence: US)
  Receive Date: 20181112
  Receipt Date: 20181112
  Transmission Date: 20190205
  Serious: Yes (Other)
  Sender: FDA-Public Use
  Company Number: None

PATIENT
  Sex: Female

DRUGS (6)
  1. FEMARA [Concomitant]
     Active Substance: LETROZOLE
  2. IBRANCE [Suspect]
     Active Substance: PALBOCICLIB
     Indication: NEOPLASM MALIGNANT
     Route: 048
     Dates: start: 20171021
  3. CALCIUM/D [Concomitant]
  4. MULTIVITAMIN [Concomitant]
     Active Substance: VITAMINS
  5. TRAMADOL. [Concomitant]
     Active Substance: TRAMADOL
  6. TYLENOL/COD [Concomitant]

REACTIONS (2)
  - Intentional dose omission [None]
  - Surgery [None]
